FAERS Safety Report 14301162 (Version 2)
Quarter: 2017Q4

REPORT INFORMATION
  Report Type: Spontaneous
  Country: CA (occurrence: CA)
  Receive Date: 20171219
  Receipt Date: 20171229
  Transmission Date: 20180321
  Serious: Yes (Other)
  Sender: FDA-Public Use
  Company Number: CA-TEVA-2017-CA-833045

PATIENT
  Age: 71 Year
  Sex: Female

DRUGS (2)
  1. ACT-VALSARTAN [Suspect]
     Active Substance: VALSARTAN
     Indication: HYPERTENSION
     Dosage: STRENGTH 80MG DAILY
     Route: 065
     Dates: start: 2017, end: 2017
  2. SANDOZ-VALSARTAN [Concomitant]
     Active Substance: VALSARTAN
     Indication: HYPERTENSION
     Dosage: STRENGTH 40MG DAILY
     Route: 065

REACTIONS (4)
  - Acute myopia [Recovered/Resolved]
  - Product contamination [Unknown]
  - Muscle spasms [Recovered/Resolved]
  - Product substitution issue [Unknown]

NARRATIVE: CASE EVENT DATE: 201711
